FAERS Safety Report 15109444 (Version 1)
Quarter: 2018Q3

REPORT INFORMATION
  Report Type: Spontaneous
  Country: CN (occurrence: CN)
  Receive Date: 20180705
  Receipt Date: 20180705
  Transmission Date: 20181010
  Serious: Yes (Other)
  Sender: FDA-Public Use
  Company Number: PHHY2018CN031404

PATIENT
  Age: 43 Year
  Sex: Male

DRUGS (2)
  1. METHYLPREDNISOLONE. [Suspect]
     Active Substance: METHYLPREDNISOLONE
     Indication: MYOCARDITIS
     Route: 065
  2. NIVOLUMAB [Concomitant]
     Active Substance: NIVOLUMAB
     Indication: THYMOMA MALIGNANT RECURRENT
     Dosage: 3 MG/KG, UNK (SINGLE DOSE)
     Route: 065

REACTIONS (3)
  - Product use in unapproved indication [Unknown]
  - Myocarditis [Unknown]
  - Condition aggravated [Unknown]
